FAERS Safety Report 7029724-7 (Version None)
Quarter: 2010Q4

REPORT INFORMATION
  Report Type: 
  Country: None (occurrence: None)
  Receive Date: 20101005
  Receipt Date: 20101005
  Transmission Date: 20110411
  Serious: Yes (Life-Threatening, Other)
  Sender: FDA-Public Use
  Company Number: None

PATIENT
  Age: 65 Year
  Sex: Male
  Weight: 83.9154 kg

DRUGS (1)
  1. SIMVASTATIN [Suspect]
     Indication: CARDIOVASCULAR EVENT PROPHYLAXIS
     Dosage: 40 MG DAILY
     Dates: start: 20090101, end: 20090106

REACTIONS (10)
  - ANAEMIA [None]
  - BLOOD GLUCOSE INCREASED [None]
  - DECREASED ACTIVITY [None]
  - GAIT DISTURBANCE [None]
  - MUSCLE SWELLING [None]
  - MYALGIA [None]
  - PAIN [None]
  - POLYMYALGIA RHEUMATICA [None]
  - TENDONITIS [None]
  - WEIGHT DECREASED [None]
